FAERS Safety Report 20980499 (Version 2)
Quarter: 2022Q2

REPORT INFORMATION
  Report Type: Report from Study
  Country: DE (occurrence: DE)
  Receive Date: 20220620
  Receipt Date: 20220630
  Transmission Date: 20220721
  Serious: Yes (Other)
  Sender: FDA-Public Use
  Company Number: DE-KYOWAKIRIN-2022BKK009100

PATIENT

DRUGS (4)
  1. BUROSUMAB [Suspect]
     Active Substance: BUROSUMAB
     Indication: Hereditary hypophosphataemic rickets
     Dosage: 20 MG
     Route: 058
     Dates: start: 20190904
  2. BUROSUMAB [Suspect]
     Active Substance: BUROSUMAB
     Dosage: 20 MG
     Route: 058
     Dates: start: 20220614
  3. BUROSUMAB [Suspect]
     Active Substance: BUROSUMAB
     Dosage: 20 MG
     Route: 058
     Dates: start: 20220628
  4. AMOXICILLIN [Concomitant]
     Active Substance: AMOXICILLIN
     Indication: Borrelia infection
     Dosage: 3X DAILY/5ML
     Route: 048
     Dates: start: 20220609, end: 20220622

REACTIONS (2)
  - Borrelia infection [Recovered/Resolved]
  - Erythema [Recovered/Resolved]

NARRATIVE: CASE EVENT DATE: 20220608
